FAERS Safety Report 5567937-1 (Version None)
Quarter: 2007Q4

REPORT INFORMATION
  Report Type: 
  Country: None (occurrence: None)
  Receive Date: 20071218
  Receipt Date: 20071218
  Transmission Date: 20080405
  Serious: No
  Sender: FDA-Public Use
  Company Number: None

PATIENT
  Age: 43 Year
  Sex: Male
  Weight: 89.8122 kg

DRUGS (6)
  1. ZIPRASIDONE HCL [Suspect]
     Dosage: 60MG PO
     Route: 048
  2. GABAPENTIN [Concomitant]
  3. IBUPROFEN [Concomitant]
  4. DULOXETINE [Concomitant]
  5. TRAZODONE HCL [Concomitant]
  6. BENZTROPINE [Concomitant]

REACTIONS (4)
  - BRADYCARDIA [None]
  - ELECTROCARDIOGRAM QT PROLONGED [None]
  - VIRAL INFECTION [None]
  - VOMITING [None]
